FAERS Safety Report 8784171 (Version 1)
Quarter: 2012Q4

REPORT INFORMATION
  Report Type: 
  Country: US (occurrence: None)
  Receive Date: 20120906
  Receipt Date: 20120906
  Transmission Date: 20130627
  Serious: Yes (Hospitalization, Other)
  Sender: FDA-Public Use
  Company Number: None

PATIENT
  Age: 67 Year
  Sex: Male
  Weight: 101.2 kg

DRUGS (9)
  1. SUTENT [Suspect]
     Indication: RENAL CELL ADENOCARCINOMA
     Dosage: (50 mg, 1 in 1 D)
     Route: 048
     Dates: start: 20110915, end: 20120131
  2. SUTENT [Suspect]
     Indication: RENAL CELL ADENOCARCINOMA
     Dosage: (37.5 mg, 1 in 1 D)
     Route: 048
     Dates: start: 20111028, end: 20111227
  3. SUTENT [Suspect]
     Indication: RENAL CELL ADENOCARCINOMA
     Dosage: (37.5 mg, 1 in 1 D)
     Route: 048
     Dates: start: 20120126, end: 20120131
  4. LOVENOX (ENOXAPARIN SODIUM) [Concomitant]
  5. COUMADIN (WARFARIN SODIUM) [Concomitant]
  6. HYDRALAZINE (HYDRALAZINE) [Concomitant]
  7. LISINOPRIL (LISINOPRIL) [Concomitant]
  8. VITAMIN D(ERCOCALCIFEROL) [Concomitant]
  9. ZYRTEC (CETIRIZINE HYDROCHLORIDE) [Concomitant]

REACTIONS (7)
  - Headache [None]
  - Subdural haematoma [None]
  - Acute sinusitis [None]
  - Haemorrhage intracranial [None]
  - Cognitive disorder [None]
  - Urinary tract infection [None]
  - Tachycardia [None]
